FAERS Safety Report 9668655 (Version 2)
Quarter: 2013Q4

REPORT INFORMATION
  Report Type: Spontaneous
  Country: FR (occurrence: FR)
  Receive Date: 20131105
  Receipt Date: 20131126
  Transmission Date: 20140711
  Serious: Yes (Hospitalization)
  Sender: FDA-Public Use
  Company Number: FR-ASTRAZENECA-2013SE79885

PATIENT
  Age: 23516 Day
  Sex: Female

DRUGS (16)
  1. INEXIUM [Suspect]
     Indication: PRODUCT USED FOR UNKNOWN INDICATION
     Route: 048
     Dates: start: 20130801, end: 2013
  2. CUBICIN [Suspect]
     Indication: PRODUCT USED FOR UNKNOWN INDICATION
     Route: 042
     Dates: start: 20130826, end: 20130904
  3. MORPHINE [Suspect]
     Indication: PRODUCT USED FOR UNKNOWN INDICATION
     Route: 058
     Dates: start: 20130801, end: 20130805
  4. MORPHINE [Suspect]
     Indication: PRODUCT USED FOR UNKNOWN INDICATION
     Route: 058
     Dates: start: 201308, end: 2013
  5. TAZOCILLINE [Suspect]
     Indication: ANTIBIOTIC THERAPY
     Dosage: 4 G / 500 MG THREE TIMES A DAY, EVERY EIGHT HOURS
     Route: 042
     Dates: start: 20130801, end: 20130904
  6. TAZOCILLINE [Suspect]
     Indication: ANTIBIOTIC THERAPY
     Route: 042
     Dates: start: 20130820, end: 20130904
  7. VANCOMYCINE [Suspect]
     Indication: ANTIBIOTIC THERAPY
     Route: 042
     Dates: start: 20130801, end: 20130812
  8. VANCOMYCINE [Suspect]
     Indication: ANTIBIOTIC THERAPY
     Route: 042
     Dates: start: 20130814, end: 20130826
  9. ACUPAN [Suspect]
     Indication: PRODUCT USED FOR UNKNOWN INDICATION
     Route: 042
     Dates: start: 20130801, end: 2013
  10. CONTRAMAL [Suspect]
     Indication: PRODUCT USED FOR UNKNOWN INDICATION
     Route: 048
     Dates: start: 20130801, end: 2013
  11. ZYVOXID [Suspect]
     Indication: PRODUCT USED FOR UNKNOWN INDICATION
     Route: 048
     Dates: start: 20130812, end: 20130814
  12. SIFROL [Concomitant]
     Indication: RESTLESS LEGS SYNDROME
     Route: 065
  13. PERFALGAN [Concomitant]
     Indication: PRODUCT USED FOR UNKNOWN INDICATION
     Route: 065
     Dates: start: 20130801, end: 20130804
  14. NICOPATCH [Concomitant]
     Indication: PRODUCT USED FOR UNKNOWN INDICATION
     Route: 062
     Dates: end: 2013
  15. PARACETAMOL [Concomitant]
     Indication: PRODUCT USED FOR UNKNOWN INDICATION
     Route: 065
  16. LOVENOX [Concomitant]
     Indication: PRODUCT USED FOR UNKNOWN INDICATION
     Route: 058
     Dates: end: 2013

REACTIONS (11)
  - Liver injury [Recovering/Resolving]
  - Eosinophilia [Recovering/Resolving]
  - Pyrexia [Unknown]
  - Chills [Recovered/Resolved]
  - Catheter site phlebitis [Unknown]
  - Thrombophlebitis superficial [Unknown]
  - Rash [Recovered/Resolved]
  - Nausea [Unknown]
  - Face oedema [Unknown]
  - Cholestasis [Unknown]
  - Hypersensitivity [Unknown]
